FAERS Safety Report 19111930 (Version 1)
Quarter: 2021Q2

REPORT INFORMATION
  Report Type: Spontaneous
  Country: US (occurrence: US)
  Receive Date: 20210409
  Receipt Date: 20210409
  Transmission Date: 20210717
  Serious: Yes (Life-Threatening, Disabling)
  Sender: FDA-Public Use
  Company Number: None

PATIENT
  Age: 25 Year
  Sex: Male
  Weight: 65.77 kg

DRUGS (5)
  1. FLEXERIL [Suspect]
     Active Substance: CYCLOBENZAPRINE HYDROCHLORIDE
  2. COGENTIN [Concomitant]
     Active Substance: BENZTROPINE MESYLATE
  3. PREDNISONE. [Suspect]
     Active Substance: PREDNISONE
  4. ABILIFY [Concomitant]
     Active Substance: ARIPIPRAZOLE
  5. MELOXICAM. [Suspect]
     Active Substance: MELOXICAM
     Indication: PRODUCT USED FOR UNKNOWN INDICATION

REACTIONS (3)
  - Product prescribing error [None]
  - Adverse event [None]
  - Wrong product administered [None]

NARRATIVE: CASE EVENT DATE: 20200324
